FAERS Safety Report 8126314-X (Version None)
Quarter: 2012Q1

REPORT INFORMATION
  Report Type: 
  Country: None (occurrence: None)
  Receive Date: 20120209
  Receipt Date: 20120201
  Transmission Date: 20120608
  Serious: Yes (Other)
  Sender: FDA-Public Use
  Company Number: US-ABBOTT-10P-163-0800709-00

PATIENT
  Sex: Female

DRUGS (3)
  1. PROGESTERONE [Suspect]
     Indication: OESTROGEN REPLACEMENT THERAPY
     Dosage: 12 FIRST DAYS OF THE MONTH
     Route: 048
     Dates: start: 20070601, end: 20080320
  2. ESTROGENS [Concomitant]
     Indication: OESTROGEN REPLACEMENT THERAPY
     Route: 048
     Dates: start: 20070601, end: 20100107
  3. PROGESTERONE [Suspect]
     Dosage: 12 FIRST DAYS OF THE MONTH
     Route: 048
     Dates: start: 20080520, end: 20100107

REACTIONS (2)
  - UTERINE CANCER [None]
  - VAGINAL HAEMORRHAGE [None]
